FAERS Safety Report 5872776-8 (Version None)
Quarter: 2008Q3

REPORT INFORMATION
  Report Type: 
  Country: None (occurrence: None)
  Receive Date: 20080903
  Receipt Date: 20080821
  Transmission Date: 20090109
  Serious: Yes (Hospitalization)
  Sender: FDA-Public Use
  Company Number: 237976J08USA

PATIENT
  Age: 41 Year
  Sex: Male
  Weight: 102.0593 kg

DRUGS (5)
  1. REBIF [Suspect]
     Indication: MULTIPLE SCLEROSIS
     Dosage: 8.8 MCG, 3 IN 1 WEEKS, SUBCUTANEOUS, 22 MCG, 3 IN 1 WEEKS, SUBCUTANEOUS
     Route: 058
     Dates: start: 20080319, end: 20080501
  2. REBIF [Suspect]
     Indication: MULTIPLE SCLEROSIS
     Dosage: 8.8 MCG, 3 IN 1 WEEKS, SUBCUTANEOUS, 22 MCG, 3 IN 1 WEEKS, SUBCUTANEOUS
     Route: 058
     Dates: start: 20080501, end: 20080501
  3. CTMBALTA (DULOXETINE) [Concomitant]
  4. UNSPECIFIED THYROID MEDICATION (THYROID THERAPY) [Concomitant]
  5. PRILOSEC OVER THE COUNTER (OMEPRAZOLE) [Concomitant]

REACTIONS (4)
  - ABASIA [None]
  - PAIN [None]
  - PYREXIA [None]
  - VISUAL IMPAIRMENT [None]
